FAERS Safety Report 8394737-X (Version None)
Quarter: 2012Q2

REPORT INFORMATION
  Report Type: 
  Country: None (occurrence: None)
  Receive Date: 20120530
  Receipt Date: 20120521
  Transmission Date: 20120825
  Serious: Yes (Hospitalization, Other)
  Sender: FDA-Public Use
  Company Number: JP-VERTEX PHARMACEUTICALS INC.-AE-2012-006220

PATIENT
  Age: 67 Year
  Sex: Female

DRUGS (13)
  1. REBETOL [Concomitant]
     Route: 048
     Dates: end: 20120520
  2. GASTROM [Concomitant]
     Route: 048
     Dates: start: 20120321
  3. VOLTAREN [Concomitant]
     Route: 048
     Dates: start: 20120308
  4. ALLOPURINOL [Concomitant]
     Route: 048
     Dates: start: 20120404
  5. TELAVIC (TELAPREVIR) [Suspect]
     Indication: HEPATITIS C
     Route: 048
     Dates: start: 20120308, end: 20120403
  6. REBETOL [Concomitant]
     Indication: HEPATITIS C
     Route: 048
     Dates: start: 20120308, end: 20120327
  7. PEGINTERFERON ALFA-2B [Concomitant]
     Indication: HEPATITIS C
     Route: 051
     Dates: start: 20120308
  8. MAGMITT [Concomitant]
     Route: 048
     Dates: start: 20120315
  9. TELAVIC (TELAPREVIR) [Suspect]
     Route: 048
     Dates: start: 20120404, end: 20120509
  10. PEGINTERFERON ALFA-2B [Concomitant]
     Route: 051
     Dates: end: 20120516
  11. REBETOL [Concomitant]
     Route: 048
     Dates: start: 20120328, end: 20120403
  12. REBETOL [Concomitant]
     Route: 048
     Dates: start: 20120404
  13. MAIBASTAN [Concomitant]
     Route: 048

REACTIONS (3)
  - BLOOD CREATININE INCREASED [None]
  - ANAEMIA [None]
  - LOSS OF CONSCIOUSNESS [None]
